FAERS Safety Report 4766383-8 (Version None)
Quarter: 2005Q3

REPORT INFORMATION
  Report Type: 
  Country: None (occurrence: None)
  Receive Date: 20050912
  Receipt Date: 20050907
  Transmission Date: 20060218
  Serious: Yes (Death)
  Sender: FDA-Public Use
  Company Number: IT-SANOFI-SYNTHELABO-F06200500015

PATIENT

DRUGS (3)
  1. OXALIPLATIN [Suspect]
     Indication: COLORECTAL CANCER
     Dosage: 130 MG/M2
     Route: 041
  2. LEUCOVORIN [Suspect]
     Indication: COLORECTAL CANCER
     Dosage: 100 MG/M2
     Route: 040
  3. FLUOROURACIL [Suspect]
     Indication: COLORECTAL CANCER
     Dosage: 425 MG/M2 FROM DAY 1 TO 3
     Route: 040

REACTIONS (1)
  - DEATH [None]
